FAERS Safety Report 14964557 (Version 6)
Quarter: 2018Q4

REPORT INFORMATION
  Report Type: Report from Study
  Country: JP (occurrence: JP)
  Receive Date: 20180601
  Receipt Date: 20181008
  Transmission Date: 20190204
  Serious: Yes (Hospitalization, Other)
  Sender: FDA-Public Use
  Company Number: JP-ASTRAZENECA-2018SE70743

PATIENT
  Age: 26194 Day
  Sex: Male

DRUGS (37)
  1. CARBOPLATIN. [Suspect]
     Active Substance: CARBOPLATIN
     Indication: NON-SMALL CELL LUNG CANCER STAGE III
     Dosage: 2.0 AUC
     Route: 065
     Dates: start: 20180516, end: 20180516
  2. PACLITAXEL. [Suspect]
     Active Substance: PACLITAXEL
     Indication: NON-SMALL CELL LUNG CANCER STAGE III
     Dosage: 40 MG/M2
     Route: 065
     Dates: start: 20180509, end: 20180509
  3. PACLITAXEL. [Suspect]
     Active Substance: PACLITAXEL
     Indication: NON-SMALL CELL LUNG CANCER STAGE III
     Dosage: 40 MG/M2
     Route: 065
     Dates: start: 20180516, end: 20180516
  4. BAYASPIRIN [Concomitant]
     Active Substance: ASPIRIN
     Indication: MYOCARDIAL INFARCTION
     Route: 048
     Dates: end: 20180627
  5. PROMAC D [Concomitant]
     Active Substance: POLAPREZINC
     Indication: ABDOMINAL DISCOMFORT
     Route: 048
     Dates: start: 20180421, end: 20180626
  6. DEXART [Concomitant]
     Active Substance: DEXAMETHASONE SODIUM PHOSPHATE
     Indication: PREMEDICATION
     Route: 042
     Dates: start: 20180418, end: 20180516
  7. REBAMIPIDE [Concomitant]
     Active Substance: REBAMIPIDE
     Indication: OROPHARYNGEAL PAIN
     Route: 048
     Dates: start: 20180428, end: 20180626
  8. OPSO [Concomitant]
     Active Substance: MORPHINE HYDROCHLORIDE
     Indication: OROPHARYNGEAL PAIN
     Dosage: 5.0MG AS REQUIRED
     Route: 048
     Dates: start: 20180515, end: 20180628
  9. DURVALUMAB. [Suspect]
     Active Substance: DURVALUMAB
     Indication: NON-SMALL CELL LUNG CANCER STAGE III
     Route: 042
     Dates: start: 20180418, end: 20180418
  10. CARBOPLATIN. [Suspect]
     Active Substance: CARBOPLATIN
     Indication: NON-SMALL CELL LUNG CANCER STAGE III
     Dosage: 2.0 AUC
     Route: 065
     Dates: start: 20180502, end: 20180502
  11. SODIUM ALGINATE [Concomitant]
     Active Substance: SODIUM ALGINATE
     Indication: OROPHARYNGEAL PAIN
     Route: 048
     Dates: start: 20180508, end: 20180628
  12. DURVALUMAB. [Suspect]
     Active Substance: DURVALUMAB
     Indication: NON-SMALL CELL LUNG CANCER STAGE III
     Route: 042
     Dates: start: 20180516, end: 20180516
  13. DURVALUMAB. [Suspect]
     Active Substance: DURVALUMAB
     Indication: NON-SMALL CELL LUNG CANCER STAGE III
     Route: 042
     Dates: start: 20180903
  14. CARBOPLATIN. [Suspect]
     Active Substance: CARBOPLATIN
     Indication: NON-SMALL CELL LUNG CANCER STAGE III
     Dosage: 2.0 AUC
     Route: 065
     Dates: start: 20180509, end: 20180509
  15. PACLITAXEL. [Suspect]
     Active Substance: PACLITAXEL
     Indication: NON-SMALL CELL LUNG CANCER STAGE III
     Dosage: 40 MG/M2
     Route: 065
     Dates: start: 20180524, end: 20180524
  16. PLAVIX [Concomitant]
     Active Substance: CLOPIDOGREL BISULFATE
     Indication: MYOCARDIAL INFARCTION
     Route: 048
     Dates: end: 20180627
  17. GASTER INJECTION [Concomitant]
     Indication: PREMEDICATION
     Route: 042
     Dates: start: 20180418, end: 20180516
  18. HIRUDOID [Concomitant]
     Active Substance: GLYCOSAMINOGLYCANS
     Indication: ECZEMA
     Dosage: 1 PRN
     Route: 058
     Dates: start: 20180511, end: 20180625
  19. SENNOSIDE [Concomitant]
     Active Substance: SENNOSIDES
     Indication: CONSTIPATION
     Dosage: 24.0MG AS REQUIRED
     Route: 048
     Dates: end: 20180626
  20. MAGNESIUM OXIDE. [Concomitant]
     Active Substance: MAGNESIUM OXIDE
     Indication: CONSTIPATION
     Route: 048
     Dates: end: 20180626
  21. CARBOPLATIN. [Suspect]
     Active Substance: CARBOPLATIN
     Indication: NON-SMALL CELL LUNG CANCER STAGE III
     Dosage: 2.0 AUC
     Route: 065
     Dates: start: 20180418, end: 20180418
  22. CARBOPLATIN. [Suspect]
     Active Substance: CARBOPLATIN
     Indication: NON-SMALL CELL LUNG CANCER STAGE III
     Dosage: 2.0 AUC
     Route: 065
     Dates: start: 20180425, end: 20180425
  23. CRESTOR [Concomitant]
     Active Substance: ROSUVASTATIN CALCIUM
     Indication: HYPERLIPIDAEMIA
     Route: 048
     Dates: end: 20180626
  24. RESTAMIN [Concomitant]
     Active Substance: DIPHENHYDRAMINE
     Indication: ECZEMA
     Dosage: PRN
     Route: 062
     Dates: start: 20180428, end: 20180516
  25. TALION (BEPOTASTINE BESYLATE) [Concomitant]
     Active Substance: BEPOTASTINE BESILATE
     Indication: ECZEMA
     Route: 048
     Dates: start: 20180509
  26. PACLITAXEL. [Suspect]
     Active Substance: PACLITAXEL
     Indication: NON-SMALL CELL LUNG CANCER STAGE III
     Dosage: 40 MG/M2
     Route: 065
     Dates: start: 20180502, end: 20180502
  27. LOXOPROFEN SODIUM [Concomitant]
     Active Substance: LOXOPROFEN SODIUM
     Indication: OROPHARYNGEAL PAIN
     Dosage: 60.0MG AS REQUIRED
     Route: 048
     Dates: start: 20180509, end: 20180625
  28. BFLUID [Concomitant]
     Active Substance: AMINO ACIDS\DEXTROSE\ELECTROLYTES NOS\VITAMINS
     Indication: DECREASED APPETITE
     Route: 042
     Dates: start: 20180523, end: 20180605
  29. METOCLOPRAMIDE. [Concomitant]
     Active Substance: METOCLOPRAMIDE
     Indication: ECZEMA
     Dosage: 5.0MG AS REQUIRED
     Route: 048
     Dates: start: 20180502, end: 20180517
  30. AMITIZA [Concomitant]
     Active Substance: LUBIPROSTONE
     Indication: CONSTIPATION
     Route: 048
     Dates: start: 20180522, end: 20180528
  31. CARBOPLATIN. [Suspect]
     Active Substance: CARBOPLATIN
     Indication: NON-SMALL CELL LUNG CANCER STAGE III
     Dosage: 2.0 AUC
     Route: 065
     Dates: start: 20180524, end: 20180524
  32. PACLITAXEL. [Suspect]
     Active Substance: PACLITAXEL
     Indication: NON-SMALL CELL LUNG CANCER STAGE III
     Dosage: 40 MG/M2
     Route: 065
     Dates: start: 20180418, end: 20180418
  33. PACLITAXEL. [Suspect]
     Active Substance: PACLITAXEL
     Indication: NON-SMALL CELL LUNG CANCER STAGE III
     Dosage: 40 MG/M2
     Route: 065
     Dates: start: 20180425, end: 20180425
  34. NEXIUM [Concomitant]
     Active Substance: ESOMEPRAZOLE MAGNESIUM
     Indication: GASTRITIS PROPHYLAXIS
     Route: 048
     Dates: end: 20180626
  35. RAMOSETRON HYDROCHLORIDE [Concomitant]
     Active Substance: RAMOSETRON HYDROCHLORIDE
     Indication: PREMEDICATION
     Route: 042
     Dates: start: 20180418, end: 20180516
  36. COCARL [Concomitant]
     Active Substance: ACETAMINOPHEN
     Indication: OROPHARYNGEAL PAIN
     Dosage: 400.0MG AS REQUIRED
     Route: 048
     Dates: start: 20180507, end: 20180628
  37. NOVAMIN (PROCHLORPERAZINE) [Concomitant]
     Active Substance: PROCHLORPERAZINE
     Indication: PROPHYLAXIS OF NAUSEA AND VOMITING
     Route: 048
     Dates: start: 20180515, end: 20180522

REACTIONS (1)
  - Oesophageal ulcer [Recovered/Resolved]

NARRATIVE: CASE EVENT DATE: 20180524
